FAERS Safety Report 4302942-4 (Version None)
Quarter: 2004Q1

REPORT INFORMATION
  Report Type: 
  Country: None (occurrence: None)
  Receive Date: 20040126
  Receipt Date: 20030925
  Transmission Date: 20041129
  Serious: No
  Sender: FDA-Public Use
  Company Number: USA030948256

PATIENT
  Age: 59 Year
  Sex: Female

DRUGS (3)
  1. STRATTERA [Suspect]
     Indication: ATTENTION DEFICIT/HYPERACTIVITY DISORDER
     Dosage: 25MG/DAY
  2. ESTROGENS NOS [Concomitant]
  3. VITAMINS NOS [Concomitant]

REACTIONS (4)
  - ANXIETY [None]
  - HEADACHE [None]
  - PSYCHOMOTOR HYPERACTIVITY [None]
  - THIRST [None]
